FAERS Safety Report 9551861 (Version 1)
Quarter: 2013Q3

REPORT INFORMATION
  Report Type: Spontaneous
  Country: US (occurrence: US)
  Receive Date: 20130925
  Receipt Date: 20130925
  Transmission Date: 20140515
  Serious: No
  Sender: FDA-Public Use
  Company Number: US-MYLANLABS-2013S1000114

PATIENT
  Age: 29 Year
  Sex: Female

DRUGS (2)
  1. CYSTAGON CAPSULES [Suspect]
     Indication: AMINO ACID METABOLISM DISORDER
     Route: 048
     Dates: start: 20121101
  2. CYSTAGON CAPSULES [Suspect]
     Indication: AMINO ACID METABOLISM DISORDER
     Route: 048
     Dates: start: 20121101

REACTIONS (1)
  - Epistaxis [Not Recovered/Not Resolved]
